FAERS Safety Report 19517540 (Version 2)
Quarter: 2021Q3

REPORT INFORMATION
  Report Type: Spontaneous
  Country: US (occurrence: US)
  Receive Date: 20210712
  Receipt Date: 20210716
  Transmission Date: 20211014
  Serious: Yes (Death, Hospitalization)
  Sender: FDA-Public Use
  Company Number: US-ROCHE-2867009

PATIENT
  Sex: Male

DRUGS (2)
  1. ESBRIET [Suspect]
     Active Substance: PIRFENIDONE
     Indication: PULMONARY FIBROSIS
     Dosage: ONGOING:NO
     Route: 048
  2. ESBRIET [Suspect]
     Active Substance: PIRFENIDONE
     Indication: IDIOPATHIC PULMONARY FIBROSIS

REACTIONS (3)
  - Acute respiratory failure [Fatal]
  - Pneumonia [Fatal]
  - Idiopathic pulmonary fibrosis [Fatal]
